FAERS Safety Report 25115395 (Version 1)
Quarter: 2025Q1

REPORT INFORMATION
  Report Type: Spontaneous
  Country: US (occurrence: US)
  Receive Date: 20250324
  Receipt Date: 20250324
  Transmission Date: 20250409
  Serious: Yes (Other)
  Sender: BAYER HEALTHCARE LLC
  Company Number: US-BAYER-2025A036150

PATIENT
  Age: 35 Year
  Sex: Female

DRUGS (1)
  1. ALKA-SELTZER GOLD [Suspect]
     Active Substance: ANHYDROUS CITRIC ACID\POTASSIUM BICARBONATE\SODIUM BICARBONATE
     Dosage: 1 DF, QD
     Route: 048
     Dates: start: 2022

REACTIONS (4)
  - Drug dependence [Not Recovered/Not Resolved]
  - Therapeutic response unexpected [Not Recovered/Not Resolved]
  - Incorrect product administration duration [Not Recovered/Not Resolved]
  - Incorrect dose administered [None]

NARRATIVE: CASE EVENT DATE: 20220101
